FAERS Safety Report 8002982-8 (Version None)
Quarter: 2011Q4

REPORT INFORMATION
  Report Type: 
  Country: None (occurrence: None)
  Receive Date: 20111222
  Receipt Date: 20110617
  Transmission Date: 20120403
  Serious: No
  Sender: FDA-Public Use
  Company Number: US-GLAXOSMITHKLINE-A0932982A

PATIENT
  Sex: Male

DRUGS (3)
  1. UROXATRAL [Concomitant]
  2. FLOMAX [Concomitant]
  3. AVODART [Suspect]
     Indication: BENIGN PROSTATIC HYPERPLASIA
     Dosage: .5MG PER DAY
     Route: 048
     Dates: start: 20090101

REACTIONS (1)
  - SEXUAL DYSFUNCTION [None]
